FAERS Safety Report 6916612-7 (Version None)
Quarter: 2010Q3

REPORT INFORMATION
  Report Type: 
  Country: None (occurrence: None)
  Receive Date: 20100810
  Receipt Date: 20100729
  Transmission Date: 20110219
  Serious: Yes (Hospitalization, Other)
  Sender: FDA-Public Use
  Company Number: JP-ROCHE-662277

PATIENT
  Sex: Male
  Weight: 62.1 kg

DRUGS (20)
  1. TOCILIZUMAB [Suspect]
     Indication: RHEUMATOID ARTHRITIS
     Route: 041
     Dates: start: 20090612, end: 20090612
  2. TOCILIZUMAB [Suspect]
     Route: 041
     Dates: start: 20090710, end: 20090710
  3. TOCILIZUMAB [Suspect]
     Route: 041
     Dates: start: 20090807, end: 20090807
  4. TOCILIZUMAB [Suspect]
     Route: 041
     Dates: start: 20090903, end: 20090903
  5. TOCILIZUMAB [Suspect]
     Route: 041
     Dates: start: 20091002, end: 20091002
  6. TOCILIZUMAB [Suspect]
     Route: 041
     Dates: start: 20091030, end: 20091030
  7. TOCILIZUMAB [Suspect]
     Route: 041
     Dates: start: 20091127
  8. PREDNISOLONE [Suspect]
     Indication: RHEUMATOID ARTHRITIS
     Dosage: DOSE FORM: PERORAL AGENT
     Route: 048
     Dates: start: 20071004, end: 20090519
  9. PREDNISOLONE [Suspect]
     Route: 048
     Dates: start: 20090520, end: 20090710
  10. PREDNISOLONE [Suspect]
     Route: 048
     Dates: start: 20090711
  11. GARENOXACIN MESILATE [Suspect]
     Indication: PRODUCT USED FOR UNKNOWN INDICATION
     Dosage: DRUG REPORTED AS: GENINAX
     Route: 048
  12. TAKEPRON [Concomitant]
     Route: 048
     Dates: start: 20090422
  13. INDOMETHACIN SODIUM [Concomitant]
     Dosage: FORM: SUSTAINED RELEASE CAPSULE DRUG REPORTED AS: INTEBAN SP(INDOMETACIN)
     Route: 048
     Dates: start: 20090422
  14. ASPIRIN [Concomitant]
     Dosage: FORM: ENTERIC
     Route: 048
     Dates: start: 20090422
  15. BENET [Concomitant]
     Dosage: DRUG REPORTED AS: BENET(SODIUM RISEDRONATE HYDRATE)
     Route: 048
     Dates: start: 20090422
  16. BASEN [Concomitant]
     Dosage: DRUG REPORTED AS: BASEN OD(VOGLIBOSE)
     Route: 048
     Dates: start: 20090422
  17. AMLODIPINE BESYLATE [Concomitant]
     Dosage: DRUG REPORTED AS: AMLODIN OD(AMLODIPINE BESILATE)
     Route: 048
     Dates: start: 20090422
  18. TANATRIL [Concomitant]
     Dosage: DRUG REPORTED AS: TANATRIL(IMIDAPRIL HYDROCHLORIDE)
     Route: 048
     Dates: start: 20090422
  19. ALLEGRA [Concomitant]
     Dosage: DRUG REPORTED AS: ALLEGRA(FEXOFENADINE HYDROCHLORIDE)
     Route: 048
     Dates: start: 20090422
  20. ZETIA [Concomitant]
     Route: 048
     Dates: start: 20090903

REACTIONS (4)
  - DIABETES MELLITUS [None]
  - HYPERCHOLESTEROLAEMIA [None]
  - HYPERTRIGLYCERIDAEMIA [None]
  - SIALOADENITIS [None]
